FAERS Safety Report 5639941-6 (Version None)
Quarter: 2008Q1

REPORT INFORMATION
  Report Type: 
  Country: None (occurrence: None)
  Receive Date: 20080227
  Receipt Date: 20080216
  Transmission Date: 20080703
  Serious: Yes (Hospitalization)
  Sender: FDA-Public Use
  Company Number: JP-NOVOPROD-272419

PATIENT
  Age: 68 Year
  Sex: Female

DRUGS (2)
  1. LEVEMIR [Suspect]
     Indication: TYPE 1 DIABETES MELLITUS
     Dosage: 16 IU, UNK
     Route: 058
     Dates: start: 20080101, end: 20080101
  2. NOVORAPID 30 MIX CHU FLEXPEN [Suspect]
     Indication: TYPE 1 DIABETES MELLITUS
     Dosage: 16 IU, UNK
     Route: 058

REACTIONS (2)
  - HYPOGLYCAEMIA [None]
  - RECTAL CANCER [None]
